FAERS Safety Report 14265421 (Version 2)
Quarter: 2019Q2

REPORT INFORMATION
  Report Type: Spontaneous
  Country: FR (occurrence: FR)
  Receive Date: 20171208
  Receipt Date: 20190412
  Transmission Date: 20190711
  Serious: Yes (Hospitalization, Other)
  Sender: FDA-Public Use
  Company Number: FR-MYLANLABS-2017M1076256

PATIENT
  Age: 48 Year
  Sex: Male

DRUGS (2)
  1. BACLOFEN. [Suspect]
     Active Substance: BACLOFEN
     Indication: MULTIPLE SCLEROSIS
     Dosage: 20 MG THREE TIMES A DAY
     Route: 065
  2. FAMPRIDINE [Interacting]
     Active Substance: DALFAMPRIDINE
     Indication: MULTIPLE SCLEROSIS
     Dosage: TWO TIMES PER DAY INTRODUCED TWO DAYS EARLIER
     Route: 065

REACTIONS (2)
  - Drug interaction [Recovering/Resolving]
  - Status epilepticus [Recovering/Resolving]
